FAERS Safety Report 9411911 (Version 2)
Quarter: 2013Q3

REPORT INFORMATION
  Report Type: Spontaneous
  Country: GB (occurrence: None)
  Receive Date: 20130619
  Receipt Date: 20130724
  Transmission Date: 20140515
  Serious: Yes (Other)
  Sender: FDA-Public Use
  Company Number: ENT 2013-0060

PATIENT
  Sex: Female

DRUGS (1)
  1. COMTESS [Suspect]
     Indication: PARKINSON^S DISEASE
     Dates: start: 2012

REACTIONS (11)
  - Back pain [None]
  - Uterine prolapse [None]
  - Dyskinesia [None]
  - Abdominal pain [None]
  - Somnolence [None]
  - Tremor [None]
  - Agitation [None]
  - Myalgia [None]
  - Defaecation urgency [None]
  - Benign neoplasm of adrenal gland [None]
  - Muscle twitching [None]
